FAERS Safety Report 15155262 (Version 1)
Quarter: 2018Q3

REPORT INFORMATION
  Report Type: Report from Study
  Country: IT (occurrence: IT)
  Receive Date: 20180717
  Receipt Date: 20180717
  Transmission Date: 20181010
  Serious: Yes (Hospitalization)
  Sender: FDA-Public Use
  Company Number: IT-TEVA-2018-IT-928201

PATIENT
  Age: 52 Year
  Sex: Male

DRUGS (2)
  1. TRIPLIAM 5 MG/1,25 MG/5 MG COMPRESSE RIVESTITE CON FILM [Concomitant]
     Route: 065
  2. IBUPROFEN. [Suspect]
     Active Substance: IBUPROFEN
     Indication: INFLUENZA
     Route: 048
     Dates: start: 20180618, end: 20180618

REACTIONS (2)
  - Dysphonia [Recovered/Resolved]
  - Angioedema [Recovered/Resolved]

NARRATIVE: CASE EVENT DATE: 20180618
